FAERS Safety Report 9199805 (Version 3)
Quarter: 2013Q2

REPORT INFORMATION
  Report Type: Spontaneous
  Country: US (occurrence: US)
  Receive Date: 20130329
  Receipt Date: 20130627
  Transmission Date: 20140414
  Serious: Yes (Hospitalization, Other)
  Sender: FDA-Public Use
  Company Number: US-ELI_LILLY_AND_COMPANY-US201303007331

PATIENT
  Age: 82 Year
  Sex: Female
  Weight: 47.17 kg

DRUGS (9)
  1. FORTEO [Suspect]
     Indication: OSTEOPOROSIS
     Dosage: UNK, QD
     Route: 058
     Dates: start: 20120723
  2. BETAXOLOL [Concomitant]
     Dosage: UNK, BID
     Route: 047
  3. BIOTIN [Concomitant]
     Dosage: UNK, QD
  4. SYMBICORT [Concomitant]
     Dosage: UNK, BID
  5. CHOLECALCIFEROL [Concomitant]
     Dosage: UNK, QD
  6. FERROUS SULFATE [Concomitant]
     Dosage: UNK, BID
  7. XALATAN [Concomitant]
     Dosage: UNK
     Route: 047
  8. MULTIVITAMIN [Concomitant]
     Dosage: UNK, QD
  9. ARMOUR THYROID [Concomitant]
     Dosage: 150 MG, QOD

REACTIONS (7)
  - Femoral neck fracture [Recovered/Resolved]
  - Fall [Recovered/Resolved]
  - Balance disorder [Recovered/Resolved]
  - Dizziness [Unknown]
  - Bone disorder [Unknown]
  - Nasal congestion [Not Recovered/Not Resolved]
  - Ear congestion [Not Recovered/Not Resolved]
